FAERS Safety Report 13864392 (Version 2)
Quarter: 2017Q3

REPORT INFORMATION
  Report Type: Spontaneous
  Country: US (occurrence: US)
  Receive Date: 20170814
  Receipt Date: 20170905
  Transmission Date: 20171127
  Serious: Yes (Hospitalization)
  Sender: FDA-Public Use
  Company Number: US-UNITED THERAPEUTICS-UNT-2017-011840

PATIENT
  Sex: Female

DRUGS (3)
  1. REMODULIN [Suspect]
     Active Substance: TREPROSTINIL
     Dosage: 0.0451 ?G/KG, CONTINUING
     Route: 058
  2. REMODULIN [Suspect]
     Active Substance: TREPROSTINIL
     Indication: PULMONARY ARTERIAL HYPERTENSION
     Dosage: 0.04125 ?G/KG, CONTINUING
     Route: 058
     Dates: start: 20170523
  3. REMODULIN [Suspect]
     Active Substance: TREPROSTINIL
     Dosage: 0.04475 ?G/KG, CONTINUING
     Route: 058
     Dates: start: 20170524

REACTIONS (4)
  - Mental status changes [Unknown]
  - Pulmonary arterial hypertension [Unknown]
  - Fluid retention [Unknown]
  - Asthenia [Unknown]

NARRATIVE: CASE EVENT DATE: 2017
